FAERS Safety Report 8555545-X (Version None)
Quarter: 2012Q3

REPORT INFORMATION
  Report Type: 
  Country: None (occurrence: None)
  Receive Date: 20120731
  Receipt Date: 20110908
  Transmission Date: 20120928
  Serious: No
  Sender: FDA-Public Use
  Company Number: US-ASTRAZENECA-2010SE44497

PATIENT
  Age: 72 Year
  Sex: Female
  Weight: 75.3 kg

DRUGS (5)
  1. SEROQUEL [Suspect]
     Route: 048
  2. TRAZODONE HCL [Concomitant]
     Indication: DEPRESSION
  3. NEURONTIN [Concomitant]
     Indication: DEPRESSION
  4. SEROQUEL [Suspect]
     Route: 048
     Dates: end: 20100901
  5. SEROQUEL [Suspect]
     Indication: BIPOLAR DISORDER
     Route: 048
     Dates: start: 20090101

REACTIONS (6)
  - AMNESIA [None]
  - SPEECH DISORDER [None]
  - MENTAL IMPAIRMENT [None]
  - DISTURBANCE IN ATTENTION [None]
  - FEELING ABNORMAL [None]
  - DRUG DOSE OMISSION [None]
